FAERS Safety Report 7030597-7 (Version None)
Quarter: 2010Q4

REPORT INFORMATION
  Report Type: 
  Country: None (occurrence: None)
  Receive Date: 20101006
  Receipt Date: 20100927
  Transmission Date: 20110411
  Serious: Yes (Other)
  Sender: FDA-Public Use
  Company Number: PL-ROCHE-729589

PATIENT
  Sex: Female

DRUGS (3)
  1. MYCOPHENOLATE MOFETIL [Suspect]
     Route: 065
  2. TACROLIMUS [Suspect]
     Route: 065
  3. BASILIXIMAB [Suspect]
     Route: 065

REACTIONS (7)
  - ANAEMIA [None]
  - DIARRHOEA [None]
  - GASTROINTESTINAL DISORDER [None]
  - HERPES ZOSTER [None]
  - LEUKOPENIA [None]
  - TRANSPLANT REJECTION [None]
  - URINARY TRACT INFECTION [None]
